FAERS Safety Report 16294902 (Version 1)
Quarter: 2019Q2

REPORT INFORMATION
  Report Type: Spontaneous
  Country: US (occurrence: US)
  Receive Date: 20190509
  Receipt Date: 20190509
  Transmission Date: 20190711
  Serious: No
  Sender: FDA-Public Use
  Company Number: US-ROCHE-2239562

PATIENT
  Sex: Female

DRUGS (12)
  1. ESBRIET [Suspect]
     Active Substance: PIRFENIDONE
     Indication: IDIOPATHIC PULMONARY FIBROSIS
     Route: 048
     Dates: start: 20170222
  2. ALEVE [Concomitant]
     Active Substance: NAPROXEN SODIUM
  3. LEVOFLOXACIN. [Concomitant]
     Active Substance: LEVOFLOXACIN
  4. LANTUS [Concomitant]
     Active Substance: INSULIN GLARGINE
  5. LOSARTAN. [Concomitant]
     Active Substance: LOSARTAN
  6. OMEPRAZOLE. [Concomitant]
     Active Substance: OMEPRAZOLE
  7. COENZYME Q10 [Concomitant]
     Active Substance: UBIDECARENONE
  8. PREDNISONE. [Concomitant]
     Active Substance: PREDNISONE
  9. ALBUTEROL [SALBUTAMOL] [Concomitant]
     Active Substance: ALBUTEROL
  10. ATORVASTATIN CALCIUM. [Concomitant]
     Active Substance: ATORVASTATIN CALCIUM
  11. GABAPENTIN. [Concomitant]
     Active Substance: GABAPENTIN
  12. METOPROLOL SUCCINATE. [Concomitant]
     Active Substance: METOPROLOL SUCCINATE

REACTIONS (1)
  - Fatigue [Unknown]
